FAERS Safety Report 8088422-1 (Version None)
Quarter: 2012Q1

REPORT INFORMATION
  Report Type: 
  Country: None (occurrence: None)
  Receive Date: 20120128
  Receipt Date: 20110603
  Transmission Date: 20120608
  Serious: No
  Sender: FDA-Public Use
  Company Number: US-ABBOTT-11P-163-0730719-00

PATIENT
  Sex: Female

DRUGS (7)
  1. LEVOTHYROXINE SODIUM [Concomitant]
     Indication: HYPOTHYROIDISM
  2. HUMIRA [Suspect]
     Indication: PSORIATIC ARTHROPATHY
     Route: 058
     Dates: start: 20110601
  3. LORAZEPAM [Concomitant]
     Indication: ANXIETY
  4. VITAMIN D [Concomitant]
     Indication: VITAMIN SUPPLEMENTATION
  5. TRAMADOL HCL [Concomitant]
     Indication: PAIN
  6. VITAMIN B-12 [Concomitant]
     Indication: FATIGUE
  7. DIGOXIN [Concomitant]
     Indication: CARDIAC DISORDER

REACTIONS (5)
  - POOR QUALITY SLEEP [None]
  - PAIN IN EXTREMITY [None]
  - PAIN [None]
  - FATIGUE [None]
  - OEDEMA PERIPHERAL [None]
